FAERS Safety Report 5193245-7 (Version None)
Quarter: 2006Q4

REPORT INFORMATION
  Report Type: 
  Country: None (occurrence: None)
  Receive Date: 20061221
  Receipt Date: 20061213
  Transmission Date: 20070319
  Serious: Yes (Death)
  Sender: FDA-Public Use
  Company Number: 2006JP002523

PATIENT
  Age: 64 Year
  Sex: Female
  Weight: 49 kg

DRUGS (12)
  1. TACROLIMUS CAPSULES (TACROLIMUS) CAPSULE [Suspect]
     Indication: RHEUMATOID ARTHRITIS
     Dosage: 1.5 MG, UID/QD, ORAL
     Route: 048
     Dates: start: 20060331, end: 20060713
  2. RHEUMATREX [Suspect]
     Indication: RHEUMATOID ARTHRITIS
     Dosage: 3.5 MG, TID, ORAL
     Route: 048
     Dates: start: 20020709, end: 20060714
  3. PREDNISOLONE [Concomitant]
  4. KETOPROFEN [Concomitant]
  5. DICLOFENAC SODIUM [Concomitant]
  6. GAMOFA [Concomitant]
  7. CYTOTEC [Concomitant]
  8. ALFACALCIDOL (ALFACALCIDOL) [Concomitant]
  9. ACTONEL [Concomitant]
  10. LIPITOR [Concomitant]
  11. LEUCOVORIN CALCIUM [Concomitant]
  12. FASTIC (NATEGLINIDE) [Concomitant]

REACTIONS (27)
  - ACUTE RESPIRATORY FAILURE [None]
  - BLISTER [None]
  - BLOOD BETA-D-GLUCAN INCREASED [None]
  - BLOOD CREATINE PHOSPHOKINASE INCREASED [None]
  - BLOOD LACTATE DEHYDROGENASE INCREASED [None]
  - COUGH [None]
  - DYSPNOEA [None]
  - EPISTAXIS [None]
  - INFARCTION [None]
  - LACRIMAL DISORDER [None]
  - LIMB INJURY [None]
  - LUNG DISORDER [None]
  - MOUTH HAEMORRHAGE [None]
  - MULTI-ORGAN FAILURE [None]
  - NECROSIS [None]
  - OPPORTUNISTIC INFECTION [None]
  - PERIPHERAL CIRCULATORY FAILURE [None]
  - PNEUMOCYSTIS JIROVECI PNEUMONIA [None]
  - PNEUMONIA [None]
  - PNEUMONIA BACTERIAL [None]
  - PURPURA [None]
  - PYREXIA [None]
  - RASH MACULAR [None]
  - RESPIRATORY MONILIASIS [None]
  - SCLERAL HAEMORRHAGE [None]
  - SOFT TISSUE NECROSIS [None]
  - VASCULITIS [None]
